FAERS Safety Report 15267425 (Version 3)
Quarter: 2018Q4

REPORT INFORMATION
  Report Type: Spontaneous
  Country: JP (occurrence: JP)
  Receive Date: 20180811
  Receipt Date: 20181014
  Transmission Date: 20190204
  Serious: Yes (Other)
  Sender: FDA-Public Use
  Company Number: JP-AMGEN-JPNSP2018108387

PATIENT
  Age: 64 Year
  Sex: Female
  Weight: 53 kg

DRUGS (11)
  1. AVASTIN [Suspect]
     Active Substance: BEVACIZUMAB
     Indication: PRODUCT USED FOR UNKNOWN INDICATION
     Dosage: UNK
     Route: 065
  2. NEXIUM [Concomitant]
     Active Substance: ESOMEPRAZOLE MAGNESIUM
     Dosage: 10 MG, QD
     Route: 065
  3. ATORVASTATIN [Concomitant]
     Active Substance: ATORVASTATIN
     Dosage: 5 MG, QD
     Route: 065
  4. PIOGLITAZONE. [Concomitant]
     Active Substance: PIOGLITAZONE
     Dosage: 15 MG, QD
     Route: 065
  5. TAGRISSO [Concomitant]
     Active Substance: OSIMERTINIB
     Dosage: 80 MG, QD
     Route: 065
  6. IMIDAPRIL [Concomitant]
     Active Substance: IMIDAPRIL
     Dosage: 5 MG, QD
     Route: 065
  7. RANMARK [Suspect]
     Active Substance: DENOSUMAB
     Indication: METASTASES TO BONE
     Dosage: 120 MG, UNK
     Route: 058
     Dates: start: 20121114
  8. CILNIDIPINE [Concomitant]
     Active Substance: CILNIDIPINE
     Dosage: 5 MG, QD
     Route: 065
  9. DENOTAS [Concomitant]
     Active Substance: CALCIUM CARBONATE\CHOLECALCIFEROL\MAGNESIUM CARBONATE
     Dosage: 2 DF, QD
     Route: 065
  10. EMPECID [Concomitant]
     Active Substance: CLOTRIMAZOLE
     Dosage: UNK, QD
  11. HIRUDOID [Concomitant]
     Active Substance: GLYCOSAMINOGLYCANS
     Dosage: UNK UNK, QD

REACTIONS (1)
  - Osteonecrosis of jaw [Not Recovered/Not Resolved]

NARRATIVE: CASE EVENT DATE: 201612
